FAERS Safety Report 10229608 (Version 2)
Quarter: 2016Q2

REPORT INFORMATION
  Report Type: Report from Study
  Country: US (occurrence: US)
  Receive Date: 20140611
  Receipt Date: 20160621
  Transmission Date: 20160815
  Serious: Yes (Life-Threatening, Hospitalization)
  Sender: FDA-Public Use
  Company Number: US-009507513-1406USA004755

PATIENT
  Age: 53 Year
  Sex: Male
  Weight: 65.2 kg

DRUGS (14)
  1. ETOPOSIDE. [Suspect]
     Active Substance: ETOPOSIDE
     Indication: NON-HODGKIN^S LYMPHOMA
     Dosage: 50 MG/M2/DAY, CONTINUOS IV INFUSION OVER 96 HOUR ON DAYS 1-4
     Route: 042
     Dates: start: 20140314
  2. DOXORUBICIN [Suspect]
     Active Substance: DOXORUBICIN
     Dosage: 10 MG/M2,/DAY CONTINUOUS IV INFUSION OVER 96 HOURS ON DAYS 1-4
     Route: 042
     Dates: start: 20140516, end: 20140519
  3. CYCLOPHOSPHAMIDE. [Suspect]
     Active Substance: CYCLOPHOSPHAMIDE
     Indication: NON-HODGKIN^S LYMPHOMA
     Dosage: 375 MG/M2- 750MG/M2 IV OVER 1 HOUR ON DAY 5
     Route: 042
     Dates: start: 20140314
  4. RITUXIMAB [Suspect]
     Active Substance: RITUXIMAB
     Indication: NON-HODGKIN^S LYMPHOMA
     Dosage: 375 MG/M2 IV ON DAY 1, CYCLE 1, CYCLE-21 DAYS
     Route: 042
     Dates: start: 20140314
  5. DOXORUBICIN [Suspect]
     Active Substance: DOXORUBICIN
     Indication: NON-HODGKIN^S LYMPHOMA
     Dosage: 10 MG/M2,/DAY CONTINUOUS IV INFUSION OVER 96 HOURS ON DAYS 1-4
     Route: 042
     Dates: start: 20140314
  6. VINCRISTINE SULFATE. [Suspect]
     Active Substance: VINCRISTINE SULFATE
     Indication: NON-HODGKIN^S LYMPHOMA
     Dosage: 0.4 MG/M2/DAY CONTINUOUS IV INFUSION OVER 96 HOURS ON DAYS 1-4
     Route: 042
     Dates: start: 20140314
  7. VINCRISTINE SULFATE. [Suspect]
     Active Substance: VINCRISTINE SULFATE
     Dosage: 0.4 MG/M2/DAY CONTINUOUS IV INFUSION OVER 96 HOURS ON DAYS 1-4
     Route: 042
     Dates: start: 20140516, end: 20140519
  8. PREDNISOLONE. [Suspect]
     Active Substance: PREDNISOLONE
     Indication: NON-HODGKIN^S LYMPHOMA
     Dosage: 60 MG/M2/DAY PO ON DAYS 1-5
     Route: 048
     Dates: start: 20140314
  9. PREDNISOLONE. [Suspect]
     Active Substance: PREDNISOLONE
     Dosage: 60 MG/M2/DAY PO ON DAYS 1-5
     Route: 048
     Dates: start: 20140516, end: 20140520
  10. VORINOSTAT [Suspect]
     Active Substance: VORINOSTAT
     Dosage: 300 MG ON DAYS 1-5, CYCLE 1, CYCLE-21 DAYS
     Route: 048
     Dates: start: 20140516, end: 20140520
  11. RITUXIMAB [Suspect]
     Active Substance: RITUXIMAB
     Dosage: 375 MG/M2 IV ON DAY 1, CYCLE 1, CYCLE-21 DAYS
     Route: 042
     Dates: start: 20140516, end: 20140516
  12. VORINOSTAT [Suspect]
     Active Substance: VORINOSTAT
     Indication: NON-HODGKIN^S LYMPHOMA
     Dosage: 300 MG ON DAYS 1-5, CYCLE 1, CYCLE-21 DAYS
     Route: 048
     Dates: start: 20140314
  13. ETOPOSIDE. [Suspect]
     Active Substance: ETOPOSIDE
     Dosage: 50 MG/M2/DAY, CONTINUOS IV INFUSION OVER 96 HOUR ON DAYS 1-4
     Route: 042
     Dates: start: 20140516, end: 20140519
  14. CYCLOPHOSPHAMIDE. [Suspect]
     Active Substance: CYCLOPHOSPHAMIDE
     Dosage: 375 MG/M2- 750MG/M2 IV OVER 1 HOUR ON DAY 5
     Route: 042
     Dates: start: 20140520, end: 20140520

REACTIONS (3)
  - White blood cell count decreased [Recovered/Resolved]
  - Febrile neutropenia [Recovered/Resolved]
  - Platelet count decreased [Recovered/Resolved]

NARRATIVE: CASE EVENT DATE: 20140527
